FAERS Safety Report 12271526 (Version 1)
Quarter: 2016Q2

REPORT INFORMATION
  Report Type: Spontaneous
  Country: US (occurrence: None)
  Receive Date: 20160414
  Receipt Date: 20160414
  Transmission Date: 20160815
  Serious: No
  Sender: FDA-Public Use
  Company Number: None

PATIENT
  Age: 47 Year
  Sex: Female

DRUGS (1)
  1. HUMIRA [Suspect]
     Active Substance: ADALIMUMAB
     Indication: RHEUMATOID ARTHRITIS
     Route: 058
     Dates: start: 20160101, end: 20160306

REACTIONS (5)
  - Rash erythematous [None]
  - Therapy cessation [None]
  - Injection site pain [None]
  - Blister [None]
  - Rash [None]

NARRATIVE: CASE EVENT DATE: 20160308
